FAERS Safety Report 7180347-9 (Version None)
Quarter: 2010Q4

REPORT INFORMATION
  Report Type: 
  Country: None (occurrence: None)
  Receive Date: 20101221
  Receipt Date: 20101216
  Transmission Date: 20110411
  Serious: Yes (Other)
  Sender: FDA-Public Use
  Company Number: A0900166A

PATIENT
  Age: 51 Year
  Sex: Female

DRUGS (7)
  1. TYKERB [Suspect]
     Indication: BREAST CANCER
     Dosage: 5TAB PER DAY
     Route: 048
     Dates: start: 20101115
  2. XELODA [Suspect]
     Indication: BREAST CANCER
     Dosage: 2000MG PER DAY
     Route: 065
     Dates: start: 20101115
  3. PROTONIX [Concomitant]
  4. PEPCID AC [Concomitant]
  5. LEVOTHYROXINE [Concomitant]
  6. ZOLOFT [Concomitant]
  7. CARAFATE [Concomitant]

REACTIONS (4)
  - DIARRHOEA [None]
  - EPISTAXIS [None]
  - PLATELET COUNT DECREASED [None]
  - RECTAL HAEMORRHAGE [None]
